FAERS Safety Report 10504496 (Version 3)
Quarter: 2015Q1

REPORT INFORMATION
  Report Type: Report from Study
  Country: IT (occurrence: IT)
  Receive Date: 20141008
  Receipt Date: 20150123
  Transmission Date: 20150720
  Serious: Yes (Hospitalization)
  Sender: FDA-Public Use
  Company Number: PHHO2011IT02136

PATIENT
  Age: 17 Year
  Sex: Female
  Weight: 49 kg

DRUGS (2)
  1. CORTICOSTEROIDS [Concomitant]
     Active Substance: CORTICOSTEROID NOS
     Indication: PRODUCT USED FOR UNKNOWN INDICATION
     Route: 065
  2. ACZ885 [Suspect]
     Active Substance: CANAKINUMAB
     Indication: TUMOUR NECROSIS FACTOR RECEPTOR-ASSOCIATED PERIODIC SYNDROME
     Dosage: 150 MG, UNK
     Route: 065
     Dates: start: 20110124

REACTIONS (3)
  - Upper respiratory tract infection [Recovered/Resolved]
  - Pneumonia pneumococcal [Recovered/Resolved]
  - Haemophilus infection [Recovered/Resolved]

NARRATIVE: CASE EVENT DATE: 20110118
